FAERS Safety Report 8174976-3 (Version None)
Quarter: 2012Q1

REPORT INFORMATION
  Report Type: 
  Country: None (occurrence: None)
  Receive Date: 20120227
  Receipt Date: 20120130
  Transmission Date: 20120608
  Serious: No
  Sender: FDA-Public Use
  Company Number: 2012SP005718

PATIENT

DRUGS (2)
  1. OLANZAPINE [Concomitant]
  2. SYCREST (ASENAPINE /05706901/) [Suspect]
     Indication: BIPOLAR DISORDER
     Dosage: 5 MG;BID

REACTIONS (4)
  - DRUG EFFECT INCREASED [None]
  - HYPOAESTHESIA ORAL [None]
  - FEELING ABNORMAL [None]
  - HYPOTENSION [None]
